FAERS Safety Report 7946246-7 (Version None)
Quarter: 2011Q4

REPORT INFORMATION
  Report Type: 
  Country: None (occurrence: None)
  Receive Date: 20111129
  Receipt Date: 20111118
  Transmission Date: 20120403
  Serious: Yes (Hospitalization)
  Sender: FDA-Public Use
  Company Number: FR-NOVOPROD-339938

PATIENT

DRUGS (12)
  1. CRESTOR [Suspect]
     Dosage: 5 MG, QD
     Route: 048
     Dates: start: 20110902, end: 20111011
  2. GLUCOPHAGE [Suspect]
     Dosage: 1500 MG, QD
  3. CALCIUM CARBONATE [Concomitant]
  4. VICTOZA [Suspect]
     Indication: TYPE 2 DIABETES MELLITUS
     Dosage: 0.6 MG, QD
     Route: 030
     Dates: start: 20110902, end: 20111011
  5. IMUREL                             /00001501/ [Concomitant]
  6. URSOLVAN [Concomitant]
  7. ASPIRIN [Concomitant]
  8. MAG 2                              /00454301/ [Concomitant]
  9. NEXIUM [Concomitant]
  10. TOPIRAMATE [Concomitant]
  11. SOLUPRED                           /00016201/ [Concomitant]
  12. GLUCOPHAGE [Suspect]
     Dosage: 1700 MG, QD

REACTIONS (2)
  - CYTOLYTIC HEPATITIS [None]
  - AUTOIMMUNE HEPATITIS [None]
